FAERS Safety Report 24770094 (Version 1)
Quarter: 2024Q4

REPORT INFORMATION
  Report Type: Spontaneous
  Country: CA (occurrence: CA)
  Receive Date: 20241224
  Receipt Date: 20241224
  Transmission Date: 20250115
  Serious: Yes (Death, Other)
  Sender: SANOFI AVENTIS
  Company Number: CA-SA-2024SA378189

PATIENT
  Age: 65 Year
  Sex: Male

DRUGS (1)
  1. FASTURTEC [Suspect]
     Active Substance: RASBURICASE
     Dosage: UNK
     Route: 042

REACTIONS (8)
  - Acute kidney injury [Fatal]
  - Cyanosis [Fatal]
  - Haemolysis [Fatal]
  - Methaemoglobinaemia [Fatal]
  - Oxygen saturation decreased [Fatal]
  - Renal failure [Fatal]
  - Respiratory failure [Fatal]
  - Shock [Fatal]
